FAERS Safety Report 6231829-5 (Version None)
Quarter: 2009Q2

REPORT INFORMATION
  Report Type: 
  Country: None (occurrence: None)
  Receive Date: 20090611
  Receipt Date: 20090611
  Transmission Date: 20091009
  Serious: Yes (Life-Threatening)
  Sender: FDA-Public Use
  Company Number: None

PATIENT
  Age: 46 Year
  Sex: Male
  Weight: 83.9154 kg

DRUGS (1)
  1. TT-40 XTREME AMERICAN CELLULAR LABS [Suspect]
     Indication: MUSCLE BUILDING THERAPY
     Dates: start: 20070501, end: 20070610

REACTIONS (1)
  - PROTHROMBIN TIME PROLONGED [None]
